FAERS Safety Report 5364295-2 (Version None)
Quarter: 2007Q2

REPORT INFORMATION
  Report Type: 
  Country: None (occurrence: None)
  Receive Date: 20070618
  Receipt Date: 20070614
  Transmission Date: 20071010
  Serious: Yes (Death, Other)
  Sender: FDA-Public Use
  Company Number: 2007SP002101

PATIENT
  Age: 66 Year
  Sex: Male
  Weight: 50 kg

DRUGS (10)
  1. TEMODAL [Suspect]
     Indication: GLIOBLASTOMA MULTIFORME
     Dosage: SE IMAGE
     Route: 048
     Dates: start: 20061027, end: 20061031
  2. TEMODAL [Suspect]
     Indication: NEOPLASM RECURRENCE
     Dosage: SE IMAGE
     Route: 048
     Dates: start: 20061027, end: 20061031
  3. TEMODAL [Suspect]
     Indication: GLIOBLASTOMA MULTIFORME
     Dosage: SE IMAGE
     Route: 048
     Dates: start: 20061222, end: 20061226
  4. TEMODAL [Suspect]
     Indication: NEOPLASM RECURRENCE
     Dosage: SE IMAGE
     Route: 048
     Dates: start: 20061222, end: 20061226
  5. TEMODAL [Suspect]
     Indication: GLIOBLASTOMA MULTIFORME
     Dosage: SE IMAGE
     Route: 048
     Dates: start: 20070118, end: 20070122
  6. TEMODAL [Suspect]
     Indication: NEOPLASM RECURRENCE
     Dosage: SE IMAGE
     Route: 048
     Dates: start: 20070118, end: 20070122
  7. NATULAN [Concomitant]
  8. CYMERIN [Concomitant]
  9. ONCOVIN [Concomitant]
  10. DEPAKENE [Concomitant]

REACTIONS (2)
  - DISEASE PROGRESSION [None]
  - INTRACRANIAL TUMOUR HAEMORRHAGE [None]
